FAERS Safety Report 4549495-3 (Version None)
Quarter: 2005Q1

REPORT INFORMATION
  Report Type: 
  Country: None (occurrence: None)
  Receive Date: 20050110
  Receipt Date: 20050110
  Transmission Date: 20050727
  Serious: Yes (Hospitalization)
  Sender: FDA-Public Use
  Company Number: None

PATIENT
  Age: 56 Year
  Sex: Male
  Weight: 87.5 kg

DRUGS (1)
  1. FLUVOXAMINE [Suspect]
     Indication: OBSESSIVE-COMPULSIVE DISORDER
     Dosage: 50MG,  50MG QD, ORAL
     Route: 048
     Dates: start: 20041001, end: 20041004

REACTIONS (2)
  - ANGIONEUROTIC OEDEMA [None]
  - RASH [None]
